FAERS Safety Report 6724551-X (Version None)
Quarter: 2010Q2

REPORT INFORMATION
  Report Type: 
  Country: None (occurrence: None)
  Receive Date: 20100513
  Receipt Date: 20100505
  Transmission Date: 20101027
  Serious: Yes (Other)
  Sender: FDA-Public Use
  Company Number: US-PFIZER INC-2010049969

PATIENT
  Sex: Female
  Weight: 83 kg

DRUGS (4)
  1. CELEBREX [Suspect]
     Indication: OSTEOARTHRITIS
     Dosage: 200 TO 400 MG, DAILY
     Route: 048
     Dates: start: 20100302, end: 20100419
  2. LISINOPRIL [Interacting]
     Indication: HYPERTENSION
     Dosage: UNK
     Dates: end: 20100427
  3. METOPROLOL [Concomitant]
     Indication: HYPERTENSION
     Dosage: 50 MG, 2X/DAY
  4. SIMVASTATIN [Concomitant]
     Indication: HYPERLIPIDAEMIA
     Dosage: UNK

REACTIONS (4)
  - BLOOD PRESSURE INCREASED [None]
  - DRUG INTERACTION [None]
  - HEADACHE [None]
  - HEART RATE INCREASED [None]
